FAERS Safety Report 5268613-5 (Version None)
Quarter: 2007Q1

REPORT INFORMATION
  Report Type: 
  Country: None (occurrence: None)
  Receive Date: 20070313
  Receipt Date: 20070227
  Transmission Date: 20070707
  Serious: Yes (Death)
  Sender: FDA-Public Use
  Company Number: 2007030005

PATIENT
  Age: 33 Year
  Sex: Female

DRUGS (1)
  1. PENICILLAMINE [Suspect]
     Indication: HEPATO-LENTICULAR DEGENERATION
     Dosage: 250 MG QD, PO
     Route: 048
     Dates: start: 20040401, end: 20040501

REACTIONS (4)
  - DRUG HYPERSENSITIVITY [None]
  - HEADACHE [None]
  - HEPATIC FAILURE [None]
  - SEPSIS [None]
